FAERS Safety Report 8168794-X (Version None)
Quarter: 2012Q1

REPORT INFORMATION
  Report Type: 
  Country: None (occurrence: None)
  Receive Date: 20120227
  Receipt Date: 20120216
  Transmission Date: 20120608
  Serious: Yes (Death, Hospitalization)
  Sender: FDA-Public Use
  Company Number: DE-PFIZER INC-2012040327

PATIENT
  Age: 60 Year
  Sex: Male
  Weight: 69 kg

DRUGS (14)
  1. CLONIDINE [Concomitant]
  2. DEXAMETHASONE [Concomitant]
     Indication: PREMEDICATION
     Dosage: 4 MG, UNK
  3. MCP ^ALIUD PHARMA^ [Concomitant]
  4. TEMSIROLIMUS [Suspect]
     Indication: RENAL CANCER
     Dosage: 25 MG, UNK
     Route: 042
     Dates: start: 20111020, end: 20120127
  5. SEROQUEL [Concomitant]
  6. TORSEMIDE [Concomitant]
  7. NOVALGIN [Concomitant]
  8. AMLODIPINE [Concomitant]
  9. LYRICA [Concomitant]
  10. METOPROLOL TARTRATE AND HYDROCHLOROTHIAZIDE [Concomitant]
  11. PANTOPRAZOLE [Concomitant]
  12. ATACAND [Concomitant]
  13. CLEMASTINE FUMARATE [Concomitant]
     Indication: PREMEDICATION
     Dosage: 2 MG, UNK
  14. ZOMETA [Concomitant]
     Indication: RENAL CANCER
     Dosage: 4 MG, UNK

REACTIONS (4)
  - DYSPNOEA [None]
  - NAUSEA [None]
  - WEIGHT DECREASED [None]
  - DECREASED APPETITE [None]
